FAERS Safety Report 5472464-6 (Version None)
Quarter: 2007Q3

REPORT INFORMATION
  Report Type: 
  Country: None (occurrence: None)
  Receive Date: 20070926
  Receipt Date: 20070917
  Transmission Date: 20080115
  Serious: Yes (Hospitalization)
  Sender: FDA-Public Use
  Company Number: GXKR2007GB08040

PATIENT
  Age: 38 Year
  Sex: Female

DRUGS (7)
  1. FLUCLOXACILLIN (NGX)(FLUCLOXACILLIN) UNKNOWN [Suspect]
     Dosage: 1 G, QID
     Dates: end: 20070807
  2. METRONIDAZOLE [Suspect]
     Indication: CELLULITIS
     Dosage: 400 MG, TID, ORAL
     Route: 048
     Dates: start: 20070731
  3. CIPROFLOXACIN [Suspect]
     Indication: CELLULITIS
     Dosage: 500 MG, BID
     Dates: start: 20070731, end: 20070807
  4. EPILIM (VALPROATE SODIUM) [Concomitant]
  5. CHLORPROMAZINE HCL [Concomitant]
  6. ACETAMINOPHEN [Concomitant]
  7. TRAMADOL HCL [Concomitant]

REACTIONS (1)
  - ERYTHEMA MULTIFORME [None]
